FAERS Safety Report 22206540 (Version 1)
Quarter: 2023Q2

REPORT INFORMATION
  Report Type: Spontaneous
  Country: US (occurrence: US)
  Receive Date: 20230413
  Receipt Date: 20230413
  Transmission Date: 20230721
  Serious: Yes (Other)
  Sender: FDA-Public Use
  Company Number: US-JNJFOC-20190736469

PATIENT
  Sex: Female
  Weight: 61.290 kg

DRUGS (1)
  1. RHINOCORT ALLERGY [Suspect]
     Active Substance: BUDESONIDE
     Indication: Multiple allergies
     Dosage: 1X PER DAY 2 SPRAYS EACH NOSTRIL
     Route: 045
     Dates: start: 20190711, end: 20190723

REACTIONS (2)
  - Migraine [Not Recovered/Not Resolved]
  - Product packaging issue [Unknown]

NARRATIVE: CASE EVENT DATE: 20190712
